FAERS Safety Report 9674462 (Version 1)
Quarter: 2013Q4

REPORT INFORMATION
  Report Type: Spontaneous
  Country: US (occurrence: US)
  Receive Date: 20131107
  Receipt Date: 20131107
  Transmission Date: 20140711
  Serious: No
  Sender: FDA-Public Use
  Company Number: US-B.I. PHARMACEUTICALS,INC./RIDGEFIELD-2013-BI-34409BP

PATIENT
  Sex: Female
  Weight: 69 kg

DRUGS (3)
  1. SPIRIVA [Suspect]
     Indication: CHRONIC OBSTRUCTIVE PULMONARY DISEASE
     Dosage: 18 MCG
     Route: 055
     Dates: start: 2007
  2. TRIAMTERENE [Concomitant]
     Indication: HYPERTENSION
     Dosage: 37.5 MG
     Route: 048
     Dates: start: 2000
  3. ATENOLOL [Concomitant]
     Indication: HYPERTENSION
     Dosage: 50 MG
     Route: 048
     Dates: start: 2000

REACTIONS (1)
  - Rheumatoid arthritis [Not Recovered/Not Resolved]
